FAERS Safety Report 9412079 (Version 1)
Quarter: 2013Q3

REPORT INFORMATION
  Report Type: Report from Study
  Country: AU (occurrence: AU)
  Receive Date: 20130722
  Receipt Date: 20130722
  Transmission Date: 20140515
  Serious: Yes (Other)
  Sender: FDA-Public Use
  Company Number: AU-ROCHE-1250493

PATIENT
  Sex: 0

DRUGS (2)
  1. CLONAZEPAM [Suspect]
     Indication: BURNING MOUTH SYNDROME
     Route: 048
  2. CLONAZEPAM [Suspect]
     Indication: OFF LABEL USE

REACTIONS (7)
  - Dizziness [Unknown]
  - Memory impairment [Unknown]
  - Mood altered [Unknown]
  - Somnolence [Unknown]
  - Fatigue [Unknown]
  - Abnormal dreams [Unknown]
  - Dysgeusia [Unknown]
